FAERS Safety Report 9398715 (Version 1)
Quarter: 2013Q3

REPORT INFORMATION
  Report Type: Spontaneous
  Country: CN (occurrence: CN)
  Receive Date: 20130712
  Receipt Date: 20130712
  Transmission Date: 20140515
  Serious: Yes (Other)
  Sender: FDA-Public Use
  Company Number: CN-BAXTER-2013BAX026551

PATIENT
  Age: 74 Year
  Sex: Male

DRUGS (2)
  1. 5% GLUCOSE INJECTION [Suspect]
     Indication: MEDICATION DILUTION
     Route: 041
     Dates: start: 20120224, end: 20120224
  2. GINKGO BILOBA EXTRACT [Suspect]
     Indication: INTESTINAL OBSTRUCTION
     Route: 041
     Dates: start: 20120224, end: 20120224

REACTIONS (6)
  - Chills [Recovering/Resolving]
  - Tachycardia [Recovering/Resolving]
  - Blood pressure increased [Recovering/Resolving]
  - Foaming at mouth [Recovering/Resolving]
  - Cyanosis [Recovering/Resolving]
  - Arrhythmia [Recovering/Resolving]
